FAERS Safety Report 8419759 (Version 2)
Quarter: 2012Q4

REPORT INFORMATION
  Report Type: 
  Country: NL (occurrence: NL)
  Receive Date: 20120222
  Receipt Date: 20121221
  Transmission Date: 20130627
  Serious: Yes (Death, Other)
  Sender: FDA-Public Use
  Company Number: NL-RANBAXY-2012RR-52645

PATIENT
  Age: 56 Year
  Sex: Female

DRUGS (5)
  1. CLARITHROMYCIN [Suspect]
     Indication: HELICOBACTER INFECTION
     Dosage: 250 mg, bid
     Route: 065
  2. OMEPRAZOLE [Suspect]
     Indication: HELICOBACTER INFECTION
     Dosage: 20 mg, bid
     Route: 065
  3. METRONIDAZOLE [Concomitant]
     Indication: HELICOBACTER INFECTION
     Dosage: 500 mg, bid
     Route: 065
  4. PAROXETINE [Concomitant]
     Indication: DEPRESSION
     Dosage: 10 mg, qd
     Route: 065
  5. LORMETAZEPAM [Concomitant]
     Indication: DEPRESSION
     Dosage: 0.5 mg, qd
     Route: 065

REACTIONS (1)
  - Delirium [Recovered/Resolved]
